FAERS Safety Report 19829795 (Version 1)
Quarter: 2021Q3

REPORT INFORMATION
  Report Type: Spontaneous
  Country: US (occurrence: US)
  Receive Date: 20210914
  Receipt Date: 20210914
  Transmission Date: 20211014
  Serious: Yes (Hospitalization)
  Sender: FDA-Public Use
  Company Number: None

PATIENT
  Age: 20 Year
  Sex: Female
  Weight: 127 kg

DRUGS (1)
  1. VYEPTI [Suspect]
     Active Substance: EPTINEZUMAB-JJMR
     Indication: MIGRAINE
     Route: 042
     Dates: start: 20210914

REACTIONS (6)
  - Abdominal pain upper [None]
  - Dyspnoea [None]
  - Sneezing [None]
  - Chest pain [None]
  - Oropharyngeal pain [None]
  - Nasal congestion [None]

NARRATIVE: CASE EVENT DATE: 20210914
